FAERS Safety Report 5100992-1 (Version None)
Quarter: 2006Q3

REPORT INFORMATION
  Report Type: 
  Country: None (occurrence: None)
  Receive Date: 20060911
  Receipt Date: 20060829
  Transmission Date: 20061208
  Serious: Yes (Life-Threatening, Hospitalization)
  Sender: FDA-Public Use
  Company Number: FR-BRISTOL-MYERS SQUIBB COMPANY-13493580

PATIENT
  Age: 13 Year
  Sex: Female

DRUGS (3)
  1. CORGARD [Suspect]
     Indication: VENTRICULAR TACHYCARDIA
     Route: 048
  2. CORGARD [Suspect]
     Route: 048
  3. AVLOCARDYL [Suspect]
     Indication: VENTRICULAR TACHYCARDIA
     Route: 048
     Dates: start: 20060701

REACTIONS (1)
  - CARDIAC ARREST [None]
